FAERS Safety Report 10101740 (Version 1)
Quarter: 2014Q2

REPORT INFORMATION
  Report Type: Spontaneous
  Country: US (occurrence: None)
  Receive Date: 20140423
  Receipt Date: 20140423
  Transmission Date: 20141212
  Serious: Yes (Hospitalization)
  Sender: FDA-Public Use
  Company Number: None

PATIENT
  Age: 78 Year
  Sex: Male
  Weight: 73.3 kg

DRUGS (1)
  1. NITROFURANTOIN [Suspect]
     Indication: URINARY TRACT INFECTION
     Route: 048
     Dates: start: 20140326, end: 20140329

REACTIONS (7)
  - Nausea [None]
  - Vomiting [None]
  - Asthenia [None]
  - Dyspnoea [None]
  - Pyrexia [None]
  - Pneumonitis [None]
  - Drug hypersensitivity [None]
